FAERS Safety Report 16463879 (Version 3)
Quarter: 2019Q3

REPORT INFORMATION
  Report Type: Report from Study
  Country: KR (occurrence: KR)
  Receive Date: 20190621
  Receipt Date: 20190711
  Transmission Date: 20191004
  Serious: Yes (Hospitalization)
  Sender: FDA-Public Use
  Company Number: KR-EISAI MEDICAL RESEARCH-EC-2019-058070

PATIENT
  Age: 29 Year
  Sex: Male
  Weight: 63.6 kg

DRUGS (4)
  1. FYCOMPA [Suspect]
     Active Substance: PERAMPANEL
     Indication: EPILEPSY
     Route: 048
     Dates: start: 20181207, end: 20190314
  2. FYCOMPA [Suspect]
     Active Substance: PERAMPANEL
     Route: 048
     Dates: start: 201904, end: 20190420
  3. FYCOMPA [Suspect]
     Active Substance: PERAMPANEL
     Route: 048
     Dates: start: 20190315, end: 20190416
  4. FYCOMPA [Suspect]
     Active Substance: PERAMPANEL
     Dosage: MORE THAN 40 MG (EXACT DOSE UNKNOWN)
     Route: 048
     Dates: start: 20190417, end: 201904

REACTIONS (3)
  - Somnolence [Unknown]
  - Intentional overdose [Recovered/Resolved]
  - Acute psychosis [Recovered/Resolved]

NARRATIVE: CASE EVENT DATE: 20190417
